FAERS Safety Report 8030414-2 (Version None)
Quarter: 2012Q1

REPORT INFORMATION
  Report Type: 
  Country: None (occurrence: None)
  Receive Date: 20120109
  Receipt Date: 20120109
  Transmission Date: 20120608
  Serious: Yes (Other)
  Sender: FDA-Public Use
  Company Number: None

PATIENT
  Age: 27 Year
  Sex: Female
  Weight: 61.688 kg

DRUGS (1)
  1. IMPLANON [Suspect]
     Indication: CONTRACEPTION
     Dosage: IMPLANT
     Route: 059
     Dates: start: 20110930, end: 20120107

REACTIONS (9)
  - ANAEMIA [None]
  - URTICARIA [None]
  - PRURITUS [None]
  - HYPERSENSITIVITY [None]
  - HAEMORRHAGE [None]
  - ASTHENIA [None]
  - FATIGUE [None]
  - HEADACHE [None]
  - PETECHIAE [None]
